FAERS Safety Report 4553676-2 (Version None)
Quarter: 2005Q1

REPORT INFORMATION
  Report Type: 
  Country: None (occurrence: None)
  Receive Date: 20041227
  Receipt Date: 20040611
  Transmission Date: 20050727
  Serious: Yes (Other)
  Sender: FDA-Public Use
  Company Number: US-JNJFOC-20040603594

PATIENT
  Age: 48 Year
  Sex: Male
  Weight: 98.4306 kg

DRUGS (7)
  1. REOPRO [Suspect]
     Indication: ANGINA PECTORIS
     Dosage: SEE IMAGE
     Route: 042
     Dates: start: 20040514, end: 20040514
  2. REOPRO [Suspect]
     Indication: ANGINA PECTORIS
     Dosage: SEE IMAGE
     Route: 042
     Dates: start: 20040514
  3. LIBRIUM [Concomitant]
  4. ACETYLSALICYLIC ACID SRT [Concomitant]
  5. PLAVIX [Concomitant]
  6. VERSED [Concomitant]
  7. NTG (GLYCERYL TRINITRATE) [Concomitant]

REACTIONS (1)
  - THROMBOCYTOPENIA [None]
